FAERS Safety Report 24095721 (Version 1)
Quarter: 2024Q3

REPORT INFORMATION
  Report Type: Spontaneous
  Country: FR (occurrence: FR)
  Receive Date: 20240716
  Receipt Date: 20240716
  Transmission Date: 20241016
  Serious: Yes (Congenital Anomaly)
  Sender: CHEPLAPHARM
  Company Number: None

PATIENT
  Age: 0 Year
  Sex: Male
  Weight: 2.375 kg

DRUGS (3)
  1. HYDROXYUREA [Suspect]
     Active Substance: HYDROXYUREA
     Indication: Essential thrombocythaemia
     Dosage: BID
     Route: 064
     Dates: start: 20221129, end: 20221206
  2. HYDROXYUREA [Suspect]
     Active Substance: HYDROXYUREA
     Indication: Essential thrombocythaemia
     Route: 064
     Dates: start: 20221206, end: 20221220
  3. HYDROXYUREA [Suspect]
     Active Substance: HYDROXYUREA
     Indication: Essential thrombocythaemia
     Route: 064
     Dates: start: 20221220, end: 20221227

REACTIONS (5)
  - Renal dysplasia [Not Recovered/Not Resolved]
  - Renal malposition [Not Recovered/Not Resolved]
  - Renal fusion anomaly [Not Recovered/Not Resolved]
  - Foetal exposure during pregnancy [Recovered/Resolved]
  - Low birth weight baby [Unknown]

NARRATIVE: CASE EVENT DATE: 20221129
